FAERS Safety Report 21784975 (Version 1)
Quarter: 2022Q4

REPORT INFORMATION
  Report Type: Spontaneous
  Country: CN (occurrence: CN)
  Receive Date: 20221227
  Receipt Date: 20221227
  Transmission Date: 20230113
  Serious: Yes (Other)
  Sender: FDA-Public Use
  Company Number: CN-PFIZER INC-PV202200130961

PATIENT
  Age: 11 Month
  Sex: Male
  Weight: 12.5 kg

DRUGS (2)
  1. AZITHROMYCIN [Suspect]
     Active Substance: AZITHROMYCIN
     Indication: Pneumonia
     Dosage: 0.125 G, 1X/DAY
     Route: 041
     Dates: start: 20221205, end: 20221209
  2. DEXTROSE [Concomitant]
     Active Substance: DEXTROSE
     Indication: Pneumonia
     Dosage: 250 ML, 1X/DAY
     Route: 041
     Dates: start: 20221205, end: 20221209

REACTIONS (1)
  - Infantile vomiting [Recovering/Resolving]

NARRATIVE: CASE EVENT DATE: 20221208
